FAERS Safety Report 25099990 (Version 1)
Quarter: 2025Q1

REPORT INFORMATION
  Report Type: Spontaneous
  Country: US (occurrence: US)
  Receive Date: 20250320
  Receipt Date: 20250320
  Transmission Date: 20250409
  Serious: No
  Sender: SANOFI AVENTIS
  Company Number: US-SA-2025SA080365

PATIENT
  Age: 62 Year
  Sex: Male
  Weight: 140 kg

DRUGS (2)
  1. DUPIXENT [Suspect]
     Active Substance: DUPILUMAB
     Indication: Dermatitis atopic
     Route: 058
     Dates: start: 20250313, end: 20250313
  2. MONTELUKAST SODIUM [Concomitant]
     Active Substance: MONTELUKAST SODIUM

REACTIONS (1)
  - Feeling abnormal [Unknown]

NARRATIVE: CASE EVENT DATE: 20250313
